FAERS Safety Report 20897214 (Version 1)
Quarter: 2022Q2

REPORT INFORMATION
  Report Type: Spontaneous
  Country: CN (occurrence: CN)
  Receive Date: 20220531
  Receipt Date: 20220531
  Transmission Date: 20220721
  Serious: Yes (Other)
  Sender: FDA-Public Use
  Company Number: CN-PFIZER INC-202200767310

PATIENT
  Age: 4 Year
  Sex: Male
  Weight: 30 kg

DRUGS (2)
  1. AZITHROMYCIN [Suspect]
     Active Substance: AZITHROMYCIN
     Indication: Pneumonia
     Dosage: 150 MG, 1X/DAY
     Route: 048
     Dates: start: 20220520, end: 20220520
  2. AZITHROMYCIN [Suspect]
     Active Substance: AZITHROMYCIN
     Indication: Mycoplasma infection

REACTIONS (1)
  - Micturition urgency [Recovered/Resolved]

NARRATIVE: CASE EVENT DATE: 20220520
